FAERS Safety Report 8130569-5 (Version None)
Quarter: 2012Q1

REPORT INFORMATION
  Report Type: 
  Country: None (occurrence: None)
  Receive Date: 20120211
  Receipt Date: 20120131
  Transmission Date: 20120608
  Serious: Yes (Hospitalization)
  Sender: FDA-Public Use
  Company Number: JP-VERTEX PHARMACEUTICALS INC.-AE-2012-001801

PATIENT
  Age: 63 Year
  Sex: Female

DRUGS (9)
  1. REBETOL [Concomitant]
     Route: 048
     Dates: start: 20120107
  2. MAGNESIUM SULFATE [Concomitant]
     Route: 048
     Dates: start: 20110801
  3. PEG-INTRON [Concomitant]
     Indication: HEPATITIS C
     Dates: start: 20111209
  4. REBETOL [Concomitant]
     Indication: HEPATITIS C
     Route: 048
     Dates: start: 20111209, end: 20111229
  5. RABEPRAZOLE SODIUM [Concomitant]
     Route: 048
     Dates: start: 20111212
  6. REBETOL [Concomitant]
     Route: 048
     Dates: start: 20111230, end: 20111230
  7. TELAVIC (TELAPREVIR) [Suspect]
     Indication: HEPATITIS C
     Route: 048
     Dates: start: 20111209
  8. REBETOL [Concomitant]
     Route: 048
     Dates: start: 20111231, end: 20111231
  9. ALLEGRA [Concomitant]
     Route: 048
     Dates: start: 20111216

REACTIONS (4)
  - HAEMOGLOBIN DECREASED [None]
  - RASH [None]
  - NAUSEA [None]
  - CONSTIPATION [None]
